FAERS Safety Report 16082221 (Version 4)
Quarter: 2019Q3

REPORT INFORMATION
  Report Type: Report from Study
  Country: US (occurrence: US)
  Receive Date: 20190317
  Receipt Date: 20190909
  Transmission Date: 20191004
  Serious: Yes (Hospitalization, Other)
  Sender: FDA-Public Use
  Company Number: US-ALEXION PHARMACEUTICALS INC.-A201903828

PATIENT
  Sex: Male

DRUGS (1)
  1. SOLIRIS [Suspect]
     Active Substance: ECULIZUMAB
     Indication: PRODUCT USED FOR UNKNOWN INDICATION
     Route: 065

REACTIONS (11)
  - Renal transplant [Unknown]
  - Complications of transplanted kidney [Unknown]
  - Bacterial infection [Unknown]
  - Plasma cell myeloma [Unknown]
  - Hypergammaglobulinaemia benign monoclonal [Unknown]
  - Central venous catheterisation [Unknown]
  - Hospitalisation [Unknown]
  - Sinusitis [Unknown]
  - Ill-defined disorder [Unknown]
  - Plasmapheresis [Unknown]
  - Renal failure [Unknown]

NARRATIVE: CASE EVENT DATE: 20190215
